FAERS Safety Report 8125713-X (Version None)
Quarter: 2012Q1

REPORT INFORMATION
  Report Type: 
  Country: None (occurrence: None)
  Receive Date: 20120209
  Receipt Date: 20120127
  Transmission Date: 20120608
  Serious: Yes (Life-Threatening, Hospitalization)
  Sender: FDA-Public Use
  Company Number: US-BRISTOL-MYERS SQUIBB COMPANY-16373318

PATIENT
  Age: 57 Year
  Sex: Female
  Weight: 66 kg

DRUGS (11)
  1. IBUPROFEN [Concomitant]
  2. LEVOTHYROXINE SODIUM [Concomitant]
  3. MONTELUKAST [Concomitant]
  4. ORENCIA [Suspect]
     Indication: RHEUMATOID ARTHRITIS
     Route: 042
  5. CARVEDILOL [Concomitant]
  6. ASPIRIN [Concomitant]
     Dosage: 1DF=1 (NO UNITS)
  7. SERTRALINE HYDROCHLORIDE [Concomitant]
  8. VITAMIN B-12 [Concomitant]
     Route: 060
  9. INSULIN [Concomitant]
  10. GABAPENTIN [Concomitant]
  11. VITAMIN D [Concomitant]

REACTIONS (1)
  - GUILLAIN-BARRE SYNDROME [None]
